FAERS Safety Report 21770043 (Version 2)
Quarter: 2022Q4

REPORT INFORMATION
  Report Type: Spontaneous
  Country: US (occurrence: US)
  Receive Date: 20221223
  Receipt Date: 20221228
  Transmission Date: 20230112
  Serious: No
  Sender: FDA-Public Use
  Company Number: US-UNITED THERAPEUTICS-UNT-2022-030341

PATIENT
  Sex: Male

DRUGS (5)
  1. ORENITRAM [Suspect]
     Active Substance: TREPROSTINIL
     Indication: Pulmonary arterial hypertension
     Dosage: 0.125 MG, TID
     Route: 048
     Dates: start: 202212, end: 202212
  2. ORENITRAM [Suspect]
     Active Substance: TREPROSTINIL
     Dosage: 0.375 MG, TID
     Route: 048
     Dates: start: 202212, end: 202212
  3. ORENITRAM [Suspect]
     Active Substance: TREPROSTINIL
     Dosage: 0.325 MG, TID
     Route: 048
     Dates: start: 202212
  4. ORENITRAM [Suspect]
     Active Substance: TREPROSTINIL
     Dosage: UNK
     Route: 048
     Dates: start: 20221202
  5. ORENITRAM [Suspect]
     Active Substance: TREPROSTINIL
     Indication: Pulmonary arterial hypertension
     Dosage: UNK
     Route: 048

REACTIONS (4)
  - Abdominal discomfort [Recovered/Resolved]
  - Headache [Recovered/Resolved]
  - Inappropriate schedule of product administration [Unknown]
  - Abdominal pain upper [Not Recovered/Not Resolved]

NARRATIVE: CASE EVENT DATE: 20220101
